FAERS Safety Report 25252718 (Version 3)
Quarter: 2025Q2

REPORT INFORMATION
  Report Type: Report from Study
  Country: US (occurrence: US)
  Receive Date: 20250429
  Receipt Date: 20250522
  Transmission Date: 20250717
  Serious: Yes (Other)
  Sender: ABBVIE
  Company Number: US-ABBVIE-6235798

PATIENT
  Age: 75 Year
  Sex: Male
  Weight: 90 kg

DRUGS (7)
  1. HUMIRA [Suspect]
     Active Substance: ADALIMUMAB
     Indication: Rheumatoid arthritis
     Dosage: FORM STRENGH: 40MG/0.4ML ?CITRATE FREE
     Route: 058
     Dates: start: 2024
  2. HUMIRA [Suspect]
     Active Substance: ADALIMUMAB
     Dosage: FORM STRENGH: 40MG/0.4ML ?CITRATE FREE
     Route: 058
     Dates: start: 2010
  3. HUMIRA [Suspect]
     Active Substance: ADALIMUMAB
     Dosage: FORM STRENGH: 40MG/0.4ML ?CITRATE FREE
     Route: 058
     Dates: start: 2011
  4. METHOTREXATE [Concomitant]
     Active Substance: METHOTREXATE
     Indication: Eye disorder
     Dates: start: 20230608
  5. METHOTREXATE [Concomitant]
     Active Substance: METHOTREXATE
     Indication: Eye disorder
     Dates: start: 202402
  6. MOXIFLOXACIN [Concomitant]
     Active Substance: MOXIFLOXACIN
     Indication: Product used for unknown indication
  7. PILOCARPINE [Concomitant]
     Active Substance: PILOCARPINE
     Indication: Product used for unknown indication

REACTIONS (14)
  - Cataract [Recovered/Resolved]
  - Inflammation [Unknown]
  - Vitreous floaters [Recovered/Resolved]
  - Scleritis [Recovered/Resolved]
  - Blindness unilateral [Recovered/Resolved]
  - Dry eye [Unknown]
  - Arthritis [Unknown]
  - Iridocyclitis [Unknown]
  - Vitritis [Unknown]
  - Epiretinal membrane [Unknown]
  - Retinal fovea disorder [Unknown]
  - Cataract nuclear [Unknown]
  - Vitreous detachment [Unknown]
  - Eye infection [Recovered/Resolved]

NARRATIVE: CASE EVENT DATE: 20210101
